FAERS Safety Report 14252340 (Version 28)
Quarter: 2021Q2

REPORT INFORMATION
  Report Type: Report from Study
  Country: US (occurrence: US)
  Receive Date: 20171205
  Receipt Date: 20210429
  Transmission Date: 20210716
  Serious: Yes (Hospitalization, Other)
  Sender: FDA-Public Use
  Company Number: US-SA-2017SA207805

PATIENT
  Age: 62 Year
  Sex: Female
  Weight: 59.4 kg

DRUGS (57)
  1. VITAMIN D3 [Concomitant]
     Active Substance: CHOLECALCIFEROL
     Dosage: 5000 DF,QD
     Route: 048
  2. COLACE [Concomitant]
     Active Substance: DOCUSATE SODIUM
     Dosage: 100 MG,QD
     Route: 048
  3. ALLEGRA [Concomitant]
     Active Substance: FEXOFENADINE HYDROCHLORIDE
     Indication: PROPHYLAXIS
     Dosage: 180 MG, QD
     Route: 048
     Dates: start: 2016
  4. VITAMIN D3 [Concomitant]
     Active Substance: CHOLECALCIFEROL
     Indication: VITAMIN D DEFICIENCY
     Dosage: 5000 IU, UNK
     Route: 048
     Dates: start: 2016
  5. COENZYME Q10 [Concomitant]
     Active Substance: DIETARY SUPPLEMENT\UBIDECARENONE
     Indication: PROPHYLAXIS
     Dosage: 200 MG, UNK
     Route: 048
     Dates: start: 2016
  6. ASPIRIN (E.C.) [Concomitant]
     Active Substance: ASPIRIN
     Indication: PROPHYLAXIS
     Dosage: 81 MG,QD
     Route: 048
     Dates: start: 20170824
  7. ATROPINE. [Concomitant]
     Active Substance: ATROPINE
     Dosage: .5 MG,UNK
     Route: 042
  8. ROXICODONE [Concomitant]
     Active Substance: OXYCODONE HYDROCHLORIDE
     Dosage: 5?10 MG, Q4H
     Route: 048
  9. GABAPENTIN. [Concomitant]
     Active Substance: GABAPENTIN
     Indication: MULTIPLE SCLEROSIS
     Dosage: 900 MG, UNK
     Route: 048
     Dates: start: 20170927
  10. NITROSTAT [Concomitant]
     Active Substance: NITROGLYCERIN
     Dosage: .4 MG,UNK
     Route: 060
  11. MORPHINE SULFATE. [Concomitant]
     Active Substance: MORPHINE SULFATE
     Dosage: 2 MG,UNK
     Route: 042
  12. OSCAL 500?D [Concomitant]
     Dosage: 1 DF,UNK
     Route: 048
  13. NEURONTIN [Concomitant]
     Active Substance: GABAPENTIN
     Dosage: 300 MG,TID
     Route: 048
  14. GLICLAZIDE [Concomitant]
     Active Substance: GLICLAZIDE
     Dosage: 10 MG,QD
     Route: 048
  15. AMBIEN [Concomitant]
     Active Substance: ZOLPIDEM TARTRATE
     Dosage: 5 MG; NIGHTLY AS NEEDED
     Route: 048
  16. MYRBETRIQ [Concomitant]
     Active Substance: MIRABEGRON
     Dosage: 50 MG, QD
     Route: 048
  17. TIZANIDINE. [Concomitant]
     Active Substance: TIZANIDINE
     Indication: MUSCLE SPASTICITY
     Dosage: 2 MG, UNK
     Route: 048
     Dates: start: 20180225
  18. LACTOBACILLUS RHAMNOSUS [Concomitant]
     Active Substance: LACTOBACILLUS RHAMNOSUS
     Indication: PROPHYLAXIS
     Dosage: 1 DF, UNK
     Route: 048
     Dates: start: 20171020
  19. ZOLPIDEM [Concomitant]
     Active Substance: ZOLPIDEM TARTRATE
     Indication: INSOMNIA
     Dosage: 5 MG, UNK
     Route: 048
     Dates: start: 2016
  20. ASCORBIC ACID. [Concomitant]
     Active Substance: ASCORBIC ACID
     Indication: PROPHYLAXIS
     Dosage: 250 MG,QD
     Route: 048
     Dates: start: 2016
  21. ROCEPHIN [Concomitant]
     Active Substance: CEFTRIAXONE SODIUM
     Dosage: 1 G,QD
     Route: 042
  22. LIORESAL [Concomitant]
     Active Substance: BACLOFEN
     Dosage: 10 MG,TID
     Route: 048
  23. VOLTAREN [DICLOFENAC] [Concomitant]
     Active Substance: DICLOFENAC SODIUM
     Dosage: 25 MG,UNK
     Route: 048
  24. HEPARINE [HEPARIN] [Concomitant]
     Active Substance: HEPARIN SODIUM
     Dosage: 5000 DF,UNK
     Route: 058
  25. VITAMINS NOS [Concomitant]
     Active Substance: VITAMINS
     Dosage: UNK UNK,QD
     Route: 048
  26. SODIUM CHLORIDE. [Concomitant]
     Active Substance: SODIUM CHLORIDE
     Dosage: 75 ML/HR; CONTINUOUS
     Route: 042
  27. VALTREX [Concomitant]
     Active Substance: VALACYCLOVIR HYDROCHLORIDE
     Dosage: 1000 MG,QD
     Route: 048
  28. BIOTIN [Concomitant]
     Active Substance: BIOTIN
     Dosage: 10000 UG, QD
     Route: 048
  29. NORCO [Concomitant]
     Active Substance: ACETAMINOPHEN\HYDROCODONE BITARTRATE
  30. IRON FERROUS SULFATE [Concomitant]
     Active Substance: FERROUS SULFATE
     Dosage: 324 MG, QD
     Route: 048
  31. ALEMTUZUMAB [Suspect]
     Active Substance: ALEMTUZUMAB
     Indication: RELAPSING MULTIPLE SCLEROSIS
     Dosage: 12 MG,QD
     Route: 041
     Dates: start: 20170925, end: 20170929
  32. PARACETAMOL [Concomitant]
     Active Substance: ACETAMINOPHEN
     Dosage: 650 MG,UNK
     Route: 048
     Dates: end: 20171023
  33. MAG?OX [Concomitant]
     Active Substance: MAGNESIUM OXIDE
     Dosage: 200 MG,UNK
     Route: 048
  34. TOCOPHEROL [Concomitant]
     Active Substance: TOCOPHEROL
     Dosage: 400 DF,QD
     Route: 048
  35. PSYLLIUM HUSKS [Concomitant]
     Active Substance: PSYLLIUM HUSK
     Dosage: 6,8 G, UNK
     Route: 048
     Dates: start: 20170817
  36. NEURONTIN [Concomitant]
     Active Substance: GABAPENTIN
     Dosage: 600 DF, QID
     Route: 048
  37. MUCINEX [Concomitant]
     Active Substance: GUAIFENESIN
     Dosage: 600 MG,BID
     Route: 048
  38. CULTURELLE [Concomitant]
     Active Substance: LACTOBACILLUS RHAMNOSUS
     Dosage: 1 DF,UNK
     Route: 048
  39. GINKGO BILOBA [Concomitant]
     Active Substance: GINKGO
     Dosage: 60 MG, QD
     Route: 048
  40. GLUCOSAMINE AND CHONDROITIN [Concomitant]
     Active Substance: CHONDROITIN SULFATE (BOVINE)\GLUCOSAMINE HYDROCHLORIDE
     Dosage: 2 DF, QD
     Route: 048
  41. OMEGA?3 FATTY ACIDS [Concomitant]
     Active Substance: OMEGA-3 FATTY ACIDS
     Dosage: 1200 MG, QD
     Route: 048
  42. VITAMIN B COMPLEX [Concomitant]
     Active Substance: CYANOCOBALAMIN\DEXPANTHENOL\NIACINAMIDE\PYRIDOXINE HYDROCHLORIDE\RIBOFLAVIN 5^-PHOSPHATE SODIUM\THIAMINE HYDROCHLORIDE\VITAMIN B COMPLEX
     Indication: PROPHYLAXIS
     Dosage: 1 DF, UNK
     Route: 048
     Dates: start: 2016
  43. CALCIUM CITRATE [Concomitant]
     Active Substance: CALCIUM CITRATE
     Indication: PROPHYLAXIS
     Dosage: 400 MG, UNK
     Route: 048
     Dates: start: 2016
  44. ZITHROMAX [Concomitant]
     Active Substance: AZITHROMYCIN DIHYDRATE
     Dosage: UNK UNK,QD
     Route: 042
  45. FAMOTIDINE. [Concomitant]
     Active Substance: FAMOTIDINE
     Dosage: 20 MG,QD
     Route: 048
  46. ALBUTEROL;IPRATROPIUM [Concomitant]
     Active Substance: ALBUTEROL\IPRATROPIUM
     Dosage: 3 ML,QID
     Route: 055
  47. CEPHAELIS SPP. FLUID EXTRACT;CHLOROFORM;CITRIC ACID;CODEINE PHOSPHATE; [Concomitant]
     Dosage: 5 ML,UNK
     Route: 048
  48. PLAQUENIL [Concomitant]
     Active Substance: HYDROXYCHLOROQUINE SULFATE
     Dosage: 200 MG, QD
     Route: 048
  49. PSYLLIUM HUSKS [Concomitant]
     Active Substance: PSYLLIUM HUSK
     Dosage: 5 DF, QD
     Route: 048
  50. ZANAFLEX [Concomitant]
     Active Substance: TIZANIDINE HYDROCHLORIDE
     Dosage: 4 MG; NIGHTLY
     Route: 048
  51. FLOMAX [Concomitant]
     Active Substance: TAMSULOSIN HYDROCHLORIDE
     Dosage: 0.4 MG, QD
     Route: 048
  52. METHYLPREDNISOLONE. [Concomitant]
     Active Substance: METHYLPREDNISOLONE
     Dosage: UNK UNK,UNK
     Route: 065
  53. PARACETAMOL [Concomitant]
     Active Substance: ACETAMINOPHEN
     Dosage: 650 MG,UNK
     Route: 054
  54. FISH OIL [Concomitant]
     Active Substance: FISH OIL
     Dosage: 1000 MG,UNK
     Route: 048
  55. PLANTAGO OVATA [Concomitant]
     Active Substance: HERBALS\PLANTAGO OVATA LEAF
     Dosage: UNK UNK,BID
     Route: 048
  56. VITAMIN E [Concomitant]
     Active Substance: .ALPHA.-TOCOPHEROL
     Dosage: 400 IU, QD
     Route: 048
  57. AUGMENTIN BD [Concomitant]
     Active Substance: AMOXICILLIN\CLAVULANIC ACID
     Dosage: 875 MG, BID
     Route: 048

REACTIONS (65)
  - Neuralgia [Not Recovered/Not Resolved]
  - Post procedural fever [Recovered/Resolved]
  - Pneumonia legionella [Recovered/Resolved]
  - Tachycardia [Recovered/Resolved]
  - Headache [Recovered/Resolved]
  - Muscular weakness [Recovered/Resolved]
  - Muscle spasticity [Not Recovered/Not Resolved]
  - Gait spastic [Not Recovered/Not Resolved]
  - Lumbar radiculopathy [Recovered/Resolved]
  - Spinal claudication [Recovered/Resolved]
  - Actinic keratosis [Recovered/Resolved]
  - Diarrhoea [Recovered/Resolved]
  - Lumbar spinal stenosis [Recovered/Resolved]
  - Hyponatraemia [Recovered/Resolved]
  - Dysphonia [Recovered/Resolved]
  - Urinary retention postoperative [Recovered/Resolved]
  - Hyperglycaemia [Recovered/Resolved]
  - Basal cell carcinoma [Recovered/Resolved]
  - Tachypnoea [Recovered/Resolved]
  - Pyrexia [Recovered/Resolved]
  - Chills [Recovered/Resolved]
  - Stress urinary incontinence [Recovered/Resolved]
  - Neuralgia [Not Recovered/Not Resolved]
  - Systemic inflammatory response syndrome [Recovered/Resolved]
  - Pneumonitis [Recovered/Resolved]
  - Pulmonary congestion [Recovered/Resolved]
  - Blood thyroid stimulating hormone decreased [Recovered/Resolved]
  - Dysphagia [Recovered/Resolved]
  - Hyperthyroidism [Recovered/Resolved]
  - Fatigue [Recovered/Resolved]
  - Bronchial wall thickening [Recovered/Resolved]
  - Arthralgia [Not Recovered/Not Resolved]
  - Back pain [Recovered/Resolved]
  - Paraesthesia [Not Recovered/Not Resolved]
  - Insomnia [Recovering/Resolving]
  - Troponin increased [Recovered/Resolved]
  - Decreased appetite [Recovered/Resolved]
  - Muscular weakness [Recovering/Resolving]
  - Hypothyroidism [Recovered/Resolved]
  - Pneumonia [Recovered/Resolved]
  - Haemorrhage [Recovered/Resolved]
  - Muscle spasms [Not Recovered/Not Resolved]
  - Muscle spasms [Not Recovered/Not Resolved]
  - Foot deformity [Not Recovered/Not Resolved]
  - Peripheral coldness [Not Recovered/Not Resolved]
  - Dry skin [Not Recovered/Not Resolved]
  - Seborrhoeic keratosis [Recovered/Resolved]
  - Hypoaesthesia [Not Recovered/Not Resolved]
  - Constipation [Not Recovered/Not Resolved]
  - Pain in extremity [Not Recovered/Not Resolved]
  - Sepsis [Recovered/Resolved]
  - Micturition urgency [Recovering/Resolving]
  - Hypoxia [Recovered/Resolved]
  - Dyspnoea exertional [Recovered/Resolved]
  - Urinary tract infection [Recovered/Resolved]
  - Oedema peripheral [Recovered/Resolved]
  - Gait disturbance [Not Recovered/Not Resolved]
  - Fatigue [Not Recovered/Not Resolved]
  - White blood cell count increased [Recovered/Resolved]
  - Urinary hesitation [Recovered/Resolved]
  - Cough [Recovered/Resolved]
  - Hypokalaemia [Recovered/Resolved]
  - Fall [Unknown]
  - Anaemia postoperative [Recovered/Resolved]
  - Joint range of motion decreased [Not Recovered/Not Resolved]

NARRATIVE: CASE EVENT DATE: 20170925
